FAERS Safety Report 6787625-3 (Version None)
Quarter: 2010Q2

REPORT INFORMATION
  Report Type: 
  Country: None (occurrence: None)
  Receive Date: 20100623
  Receipt Date: 20040315
  Transmission Date: 20101027
  Serious: Yes (Other)
  Sender: FDA-Public Use
  Company Number: US-PFIZER INC-2007057842

PATIENT
  Sex: Female

DRUGS (2)
  1. DEPO-PROVERA SUSPENSION/INJ [Suspect]
     Indication: CONTRACEPTION
     Dosage: FIRST INJECTION
     Dates: start: 20030901, end: 20030901
  2. DEPO-PROVERA SUSPENSION/INJ [Suspect]
     Dates: start: 20031201, end: 20031201

REACTIONS (3)
  - DIZZINESS [None]
  - FATIGUE [None]
  - MENORRHAGIA [None]
